FAERS Safety Report 4884633-4 (Version None)
Quarter: 2005Q4

REPORT INFORMATION
  Report Type: 
  Country: None (occurrence: None)
  Receive Date: 20051201
  Receipt Date: 20050921
  Transmission Date: 20060501
  Serious: No
  Sender: FDA-Public Use
  Company Number: 2005PV002366

PATIENT
  Age: 55 Year
  Sex: Male
  Weight: 73.9363 kg

DRUGS (6)
  1. BYETTA [Suspect]
     Indication: DIABETES MELLITUS NON-INSULIN-DEPENDENT
     Dosage: 5 MCG; BID; SC
     Route: 058
     Dates: start: 20050918
  2. ACTOS [Concomitant]
  3. AMARYL [Concomitant]
  4. ZOCOR [Concomitant]
  5. ALTACE [Concomitant]
  6. METFORMIN HCL [Concomitant]

REACTIONS (5)
  - ASTHENIA [None]
  - BLOOD GLUCOSE DECREASED [None]
  - FEELING ABNORMAL [None]
  - IRRITABILITY [None]
  - SOMNOLENCE [None]
